FAERS Safety Report 8185840-8 (Version None)
Quarter: 2012Q1

REPORT INFORMATION
  Report Type: 
  Country: None (occurrence: None)
  Receive Date: 20120305
  Receipt Date: 20100920
  Transmission Date: 20120608
  Serious: Yes (Hospitalization)
  Sender: FDA-Public Use
  Company Number: PHFR2010GB006208

PATIENT
  Sex: Female

DRUGS (1)
  1. EXTAVIA [Suspect]

REACTIONS (2)
  - HYPERSENSITIVITY [None]
  - SENSORY LOSS [None]
